FAERS Safety Report 5163696-5 (Version None)
Quarter: 2006Q4

REPORT INFORMATION
  Report Type: 
  Country: None (occurrence: None)
  Receive Date: 20061204
  Receipt Date: 20010925
  Transmission Date: 20070319
  Serious: Yes (Hospitalization)
  Sender: FDA-Public Use
  Company Number: FR-GLAXOSMITHKLINE-B0121962A

PATIENT
  Age: 1 Day
  Sex: Female
  Weight: 2.4 kg

DRUGS (12)
  1. EPIVIR [Suspect]
     Indication: ANTIVIRAL PROPHYLAXIS
     Dosage: 10MGML UNKNOWN
     Route: 048
     Dates: start: 19980320, end: 19980424
  2. ZIDOVUDINE [Suspect]
     Indication: ANTIVIRAL PROPHYLAXIS
     Dosage: 10MGML UNKNOWN
     Route: 048
     Dates: start: 19980320, end: 19980424
  3. ZIDOVUDINE [Suspect]
     Dosage: 200MG PER DAY
     Route: 042
     Dates: start: 19980320, end: 19980320
  4. EPIVIR [Suspect]
     Indication: HIV INFECTION
     Route: 048
  5. ZIDOVUDINE [Suspect]
     Indication: HIV INFECTION
     Route: 048
  6. CEFTAZIDIME SODIUM [Concomitant]
     Route: 065
  7. SALMETEROL XINAFOATE [Concomitant]
     Route: 055
  8. ALBUTEROL SPIROS [Concomitant]
     Route: 065
  9. AMOXICILLIN [Concomitant]
     Route: 065
  10. IRON SALT [Concomitant]
     Route: 065
  11. BUDESONIDE [Concomitant]
     Route: 065
  12. VITAMIN CAP [Concomitant]
     Route: 065

REACTIONS (18)
  - ALANINE AMINOTRANSFERASE INCREASED [None]
  - ANAEMIA [None]
  - ASPARTATE AMINOTRANSFERASE INCREASED [None]
  - BLOOD CREATINE PHOSPHOKINASE INCREASED [None]
  - BLOOD CREATININE INCREASED [None]
  - BLOOD KETONE BODY INCREASED [None]
  - BLOOD KETONE BODY PRESENT [None]
  - BLOOD LACTATE DEHYDROGENASE INCREASED [None]
  - BLOOD LACTIC ACID INCREASED [None]
  - BRONCHITIS [None]
  - HEPATOSPLENOMEGALY [None]
  - LIPASE INCREASED [None]
  - NEUTROPENIA [None]
  - PREMATURE BABY [None]
  - RESTLESSNESS [None]
  - SPEECH DISORDER [None]
  - UMBILICAL HERNIA [None]
  - URINE CYTOMEGALOVIRUS POSITIVE [None]
